FAERS Safety Report 13670705 (Version 1)
Quarter: 2017Q2

REPORT INFORMATION
  Report Type: Spontaneous
  Country: US (occurrence: US)
  Receive Date: 20170620
  Receipt Date: 20170620
  Transmission Date: 20170830
  Serious: Yes (Hospitalization)
  Sender: FDA-Public Use
  Company Number: US-LUNDBECK-DKLU2032710

PATIENT
  Age: 3 Year
  Sex: Female

DRUGS (2)
  1. ONFI [Suspect]
     Active Substance: CLOBAZAM
     Indication: TUBEROUS SCLEROSIS
     Route: 048
     Dates: start: 20170607, end: 201706
  2. ONFI [Suspect]
     Active Substance: CLOBAZAM
     Indication: SEIZURE

REACTIONS (1)
  - Seizure [Unknown]

NARRATIVE: CASE EVENT DATE: 201706
